FAERS Safety Report 9841231 (Version 2)
Quarter: 2014Q1

REPORT INFORMATION
  Report Type: Spontaneous
  Country: US (occurrence: None)
  Receive Date: 20131223
  Receipt Date: 20140228
  Transmission Date: 20141002
  Serious: No
  Sender: FDA-Public Use
  Company Number: 222021LEO

PATIENT
  Age: 56 Year
  Sex: Female

DRUGS (4)
  1. PICATO [Suspect]
     Indication: ACTINIC KERATOSIS
     Route: 061
     Dates: start: 20130520
  2. GABAPENTIN (GABAPENTIN) [Concomitant]
  3. BABY ASA (ACETYLSALICYLIC ACID) (81 MG) [Concomitant]
  4. BONIVA (IBANIDRONATE SODIUM) (150 MG) [Concomitant]

REACTIONS (6)
  - Application site anaesthesia [None]
  - Paraesthesia [None]
  - Application site paraesthesia [None]
  - Application site pain [None]
  - Application site erythema [None]
  - Application site pain [None]
